FAERS Safety Report 13326894 (Version 1)
Quarter: 2017Q1

REPORT INFORMATION
  Report Type: Report from Study
  Country: IE (occurrence: IE)
  Receive Date: 20170312
  Receipt Date: 20170312
  Transmission Date: 20170428
  Serious: Yes (Hospitalization)
  Sender: FDA-Public Use
  Company Number: PHFR2017IE001523

PATIENT
  Age: 60 Year
  Sex: Male

DRUGS (1)
  1. ZYKADIA [Suspect]
     Active Substance: CERITINIB
     Indication: LUNG NEOPLASM MALIGNANT
     Dosage: 450 MG, UNK
     Route: 048
     Dates: start: 20170102

REACTIONS (2)
  - Trigger finger [Unknown]
  - Appendicitis [Unknown]

NARRATIVE: CASE EVENT DATE: 20170224
